FAERS Safety Report 5721836-0 (Version None)
Quarter: 2008Q2

REPORT INFORMATION
  Report Type: 
  Country: None (occurrence: None)
  Receive Date: 20080429
  Receipt Date: 20070521
  Transmission Date: 20081010
  Serious: No
  Sender: FDA-Public Use
  Company Number: US-ASTRAZENECA-2007UW12565

PATIENT
  Age: 56 Year
  Sex: Female
  Weight: 59.9 kg

DRUGS (3)
  1. NEXIUM [Suspect]
     Indication: STOMACH DISCOMFORT
     Route: 048
     Dates: start: 20070401, end: 20070401
  2. NEXIUM [Suspect]
     Route: 048
     Dates: start: 20070416
  3. ZOLOFT [Concomitant]

REACTIONS (3)
  - DRUG INEFFECTIVE [None]
  - NAUSEA [None]
  - SENSATION OF FOREIGN BODY [None]
